FAERS Safety Report 20196203 (Version 2)
Quarter: 2021Q4

REPORT INFORMATION
  Report Type: Report from Study
  Country: MX (occurrence: MX)
  Receive Date: 20211216
  Receipt Date: 20211217
  Transmission Date: 20220303
  Serious: Yes (Death, Hospitalization, Other)
  Sender: FDA-Public Use
  Company Number: MX-UCBSA-2021058661

PATIENT
  Age: 62 Year
  Sex: Female

DRUGS (1)
  1. ROTIGOTINE [Suspect]
     Active Substance: ROTIGOTINE
     Indication: Parkinson^s disease
     Dosage: UNK
     Route: 062
     Dates: start: 201903, end: 201910

REACTIONS (10)
  - Death [Fatal]
  - Memory impairment [Not Recovered/Not Resolved]
  - Skin ulcer [Not Recovered/Not Resolved]
  - Gait inability [Not Recovered/Not Resolved]
  - Loss of consciousness [Not Recovered/Not Resolved]
  - Movement disorder [Not Recovered/Not Resolved]
  - Delirium [Not Recovered/Not Resolved]
  - Aphasia [Not Recovered/Not Resolved]
  - Decreased appetite [Not Recovered/Not Resolved]
  - Drug ineffective [Unknown]

NARRATIVE: CASE EVENT DATE: 20190301
